FAERS Safety Report 13840126 (Version 1)
Quarter: 2017Q3

REPORT INFORMATION
  Report Type: Spontaneous
  Country: US (occurrence: US)
  Receive Date: 20170807
  Receipt Date: 20170807
  Transmission Date: 20171127
  Serious: No
  Sender: FDA-Public Use
  Company Number: None

PATIENT
  Age: 23 Year
  Sex: Female
  Weight: 72 kg

DRUGS (8)
  1. IMPLANON [Concomitant]
     Active Substance: ETONOGESTREL
  2. LUPRON DEPOT [Suspect]
     Active Substance: LEUPROLIDE ACETATE
     Indication: ENDOMETRIOSIS
     Dosage: ?          QUANTITY:1 INJECTION(S);OTHER FREQUENCY:MONTHLY;?
     Route: 030
     Dates: start: 20170719
  3. XANEX [Concomitant]
  4. QVAR80 [Concomitant]
  5. CALCIUM [Concomitant]
     Active Substance: CALCIUM
  6. ALBUTEROL. [Concomitant]
     Active Substance: ALBUTEROL
  7. NORCO [Concomitant]
     Active Substance: ACETAMINOPHEN\HYDROCODONE BITARTRATE
  8. SERTRALINE [Concomitant]
     Active Substance: SERTRALINE HYDROCHLORIDE

REACTIONS (3)
  - Abdominal pain lower [None]
  - Nausea [None]
  - Abnormal dreams [None]
